FAERS Safety Report 6084670-0 (Version None)
Quarter: 2009Q1

REPORT INFORMATION
  Report Type: 
  Country: None (occurrence: None)
  Receive Date: 20090217
  Receipt Date: 20090209
  Transmission Date: 20090719
  Serious: Yes (Hospitalization)
  Sender: FDA-Public Use
  Company Number: TAP2009Q00106

PATIENT
  Age: 54 Year
  Sex: Female
  Weight: 43.18 kg

DRUGS (4)
  1. PREVACID [Suspect]
     Indication: GASTROOESOPHAGEAL REFLUX DISEASE
     Dosage: 30 MG (30 MG, 1 IN 1 D), PER ORAL
     Route: 048
     Dates: start: 19970101
  2. VITAMIN E [Concomitant]
  3. MULTIVITAMIN (MULTIVITAMIN /00831701/) [Concomitant]
  4. ASCORBIC ACID [Concomitant]

REACTIONS (2)
  - BONE DENSITY DECREASED [None]
  - BREAST CANCER FEMALE [None]
